FAERS Safety Report 9351887 (Version 4)
Quarter: 2014Q1

REPORT INFORMATION
  Report Type: Report from Study
  Country: US (occurrence: US)
  Receive Date: 20130617
  Receipt Date: 20140314
  Transmission Date: 20141002
  Serious: Yes (Hospitalization, Other)
  Sender: FDA-Public Use
  Company Number: US-GLAXOSMITHKLINE-A1012556A

PATIENT
  Sex: Male

DRUGS (2)
  1. ALBUTEROL [Suspect]
     Indication: CHRONIC OBSTRUCTIVE PULMONARY DISEASE
     Route: 055
  2. POLYPHARMACY [Suspect]

REACTIONS (11)
  - Hypersensitivity vasculitis [Unknown]
  - Haemorrhage subcutaneous [Unknown]
  - Pneumonia [Unknown]
  - Purpura [Unknown]
  - Soft tissue injury [Unknown]
  - Pruritus [Unknown]
  - Pain [Unknown]
  - Dysstasia [Unknown]
  - Feeling drunk [Unknown]
  - Rash [Unknown]
  - Cardiac disorder [Unknown]
